FAERS Safety Report 8029793-1 (Version None)
Quarter: 2012Q1

REPORT INFORMATION
  Report Type: 
  Country: None (occurrence: None)
  Receive Date: 20120109
  Receipt Date: 20111228
  Transmission Date: 20120608
  Serious: Yes (Hospitalization)
  Sender: FDA-Public Use
  Company Number: US-ELI_LILLY_AND_COMPANY-US201108001645

PATIENT
  Sex: Female

DRUGS (11)
  1. VITAMIN C [Concomitant]
  2. CALCIUM ACETATE [Concomitant]
  3. YEAST [Concomitant]
  4. VITAMIN D [Concomitant]
  5. GLUCOSAMINE [Concomitant]
  6. FORTEO [Suspect]
     Dosage: 20 UG, QD
     Route: 065
  7. POTASSIUM CHLORIDE [Concomitant]
  8. FORTEO [Suspect]
     Dosage: 20 UG, QD
  9. FORTEO [Suspect]
     Indication: OSTEOPOROSIS
     Dosage: 20 UG, QD
     Route: 065
     Dates: start: 20110501
  10. GLUCOSAMINE CHONDROITIN [Concomitant]
  11. NIACIN [Concomitant]

REACTIONS (5)
  - ARTHRITIS [None]
  - COAGULOPATHY [None]
  - ARTHRALGIA [None]
  - GAIT DISTURBANCE [None]
  - INJECTION SITE HAEMORRHAGE [None]
